FAERS Safety Report 25031184 (Version 1)
Quarter: 2025Q1

REPORT INFORMATION
  Report Type: Spontaneous
  Country: CA (occurrence: CA)
  Receive Date: 20250303
  Receipt Date: 20250303
  Transmission Date: 20250409
  Serious: Yes (Hospitalization)
  Sender: Haleon PLC
  Company Number: CA-002147023-NVSC2024CA102369

PATIENT
  Age: 24 Year
  Sex: Female

DRUGS (1)
  1. DICLOFENAC [Suspect]
     Active Substance: DICLOFENAC
     Indication: Product used for unknown indication
     Route: 065

REACTIONS (5)
  - Back pain [Unknown]
  - Headache [Unknown]
  - Neck pain [Unknown]
  - Drug ineffective [Unknown]
  - Fibromyalgia [Unknown]
